FAERS Safety Report 7729394-6 (Version None)
Quarter: 2011Q3

REPORT INFORMATION
  Report Type: 
  Country: None (occurrence: None)
  Receive Date: 20110906
  Receipt Date: 20110829
  Transmission Date: 20111222
  Serious: Yes (Hospitalization, Other)
  Sender: FDA-Public Use
  Company Number: AU-AMGEN-AUSSP2011039164

PATIENT
  Age: 50 Year
  Sex: Male
  Weight: 60 kg

DRUGS (3)
  1. TACROLIMUS [Concomitant]
     Indication: TRANSPLANT
     Dosage: 2 MG, UNK
     Route: 048
     Dates: start: 20101001, end: 20110523
  2. ARANESP [Suspect]
     Indication: ANAEMIA
     Dosage: 150 MUG, 2 TIMES/WK
     Dates: start: 20100101, end: 20110721
  3. CYCLOSPORINE [Concomitant]
     Dosage: UNK
     Dates: start: 20110524

REACTIONS (3)
  - NEUTROPENIA [None]
  - ANAEMIA [None]
  - BONE MARROW FAILURE [None]
